FAERS Safety Report 4940147-4 (Version None)
Quarter: 2006Q1

REPORT INFORMATION
  Report Type: 
  Country: None (occurrence: None)
  Receive Date: 20060307
  Receipt Date: 20060220
  Transmission Date: 20060701
  Serious: Yes (Hospitalization, Other)
  Sender: FDA-Public Use
  Company Number: 2006AL000504

PATIENT
  Age: 32 Year
  Sex: Female

DRUGS (1)
  1. PHENYTOIN [Suspect]
     Indication: CONVULSION PROPHYLAXIS

REACTIONS (19)
  - ALANINE AMINOTRANSFERASE INCREASED [None]
  - ASPARTATE AMINOTRANSFERASE INCREASED [None]
  - BIOPSY LYMPH GLAND ABNORMAL [None]
  - BLOOD ALBUMIN DECREASED [None]
  - DRUG HYPERSENSITIVITY [None]
  - DYSPHAGIA [None]
  - HEADACHE [None]
  - HEPATIC ENZYME INCREASED [None]
  - INTERNATIONAL NORMALISED RATIO ABNORMAL [None]
  - LYMPHADENITIS [None]
  - NECROSIS [None]
  - PHARYNGEAL ERYTHEMA [None]
  - PHARYNGOLARYNGEAL PAIN [None]
  - PROTHROMBIN TIME PROLONGED [None]
  - PYREXIA [None]
  - RASH GENERALISED [None]
  - RED BLOOD CELL SEDIMENTATION RATE INCREASED [None]
  - TENDERNESS [None]
  - TONSILLAR DISORDER [None]
